FAERS Safety Report 16278012 (Version 1)
Quarter: 2019Q2

REPORT INFORMATION
  Report Type: Other
  Country: IT (occurrence: IT)
  Receive Date: 20190506
  Receipt Date: 20190506
  Transmission Date: 20190711
  Serious: Yes (Other)
  Sender: FDA-Public Use
  Company Number: IT-RARE DISEASE THERAPEUTICS, INC.-2066676

PATIENT
  Age: 20 Year
  Sex: Female
  Weight: 38 kg

DRUGS (5)
  1. CYCLOPHOSPHAMIDE. [Suspect]
     Active Substance: CYCLOPHOSPHAMIDE
  2. VINCRISTINE [Suspect]
     Active Substance: VINCRISTINE
  3. METHOTREXATE. [Suspect]
     Active Substance: METHOTREXATE
  4. VORICONAZOLE. [Suspect]
     Active Substance: VORICONAZOLE
     Route: 048
  5. PURIXAN [Suspect]
     Active Substance: MERCAPTOPURINE
     Indication: ACUTE LYMPHOCYTIC LEUKAEMIA

REACTIONS (5)
  - Hypertransaminasaemia [Unknown]
  - Drug interaction [None]
  - Drug level increased [Unknown]
  - Therapeutic product effect incomplete [Unknown]
  - Hepatotoxicity [Recovered/Resolved]
